FAERS Safety Report 6790669-9 (Version None)
Quarter: 2010Q2

REPORT INFORMATION
  Report Type: 
  Country: None (occurrence: None)
  Receive Date: 20100624
  Receipt Date: 20100616
  Transmission Date: 20101027
  Serious: Yes (Hospitalization, Other)
  Sender: FDA-Public Use
  Company Number: US-ASTRAZENECA-2010SE28060

PATIENT
  Age: 64 Year
  Sex: Male

DRUGS (6)
  1. SEROQUEL [Suspect]
     Indication: DEPRESSION
     Route: 048
     Dates: start: 20070101, end: 20100615
  2. SEROQUEL [Suspect]
     Indication: INSOMNIA
     Route: 048
     Dates: start: 20070101, end: 20100615
  3. DIOVAN [Concomitant]
  4. EFFEXOR [Concomitant]
  5. NORVASC [Concomitant]
  6. OXYCODONE HCL [Concomitant]

REACTIONS (7)
  - GASTROINTESTINAL SURGERY [None]
  - GYNAECOMASTIA [None]
  - INTESTINAL STOMA [None]
  - NIPPLE PAIN [None]
  - PAIN [None]
  - VISION BLURRED [None]
  - WEIGHT DECREASED [None]
